FAERS Safety Report 8862868 (Version 1)
Quarter: 2012Q4

REPORT INFORMATION
  Report Type: Report from Study
  Country: US (occurrence: US)
  Receive Date: 20121026
  Receipt Date: 20121026
  Transmission Date: 20130627
  Serious: Yes (Hospitalization, Other)
  Sender: FDA-Public Use
  Company Number: US-ABBOTT-12P-163-0997630-00

PATIENT
  Age: 16 Year
  Sex: Female

DRUGS (3)
  1. HUMIRA [Suspect]
     Indication: CROHN^S DISEASE
     Route: 058
     Dates: start: 201205
  2. UNKNOWN IMMUNOMODULATOR [Suspect]
     Indication: CROHN^S DISEASE
  3. PREVACID [Concomitant]
     Indication: PRODUCT USED FOR UNKNOWN INDICATION

REACTIONS (4)
  - Small intestinal obstruction [Recovered/Resolved]
  - Skin infection [Not Recovered/Not Resolved]
  - Off label use [Not Recovered/Not Resolved]
  - Staphylococcal infection [Not Recovered/Not Resolved]
